FAERS Safety Report 6672709-0 (Version None)
Quarter: 2010Q2

REPORT INFORMATION
  Report Type: 
  Country: None (occurrence: None)
  Receive Date: 20100408
  Receipt Date: 20100401
  Transmission Date: 20101027
  Serious: Yes (Death)
  Sender: FDA-Public Use
  Company Number: NL-ROCHE-692396

PATIENT
  Sex: Female

DRUGS (5)
  1. AVASTIN [Suspect]
     Route: 042
  2. TAXOL [Suspect]
     Route: 042
     Dates: start: 20090101, end: 20090101
  3. FLUOROURACIL [Suspect]
     Dosage: START DATE AND STOP DATE: 2010.
     Route: 065
  4. EPIRUBICIN [Suspect]
     Dosage: STOP AND START DATE: 2010
     Route: 065
  5. CYCLOPHOSPHAMIDE [Suspect]
     Dosage: STOP AND START DATE: 2010
     Route: 065

REACTIONS (2)
  - DISEASE PROGRESSION [None]
  - THROMBOSIS IN DEVICE [None]
